FAERS Safety Report 6556593-1 (Version None)
Quarter: 2010Q1

REPORT INFORMATION
  Report Type: 
  Country: None (occurrence: None)
  Receive Date: 20100128
  Receipt Date: 20100118
  Transmission Date: 20100710
  Serious: Yes (Hospitalization, Other)
  Sender: FDA-Public Use
  Company Number: DE-PFIZER INC-2010007299

PATIENT
  Age: 16 Year
  Sex: Female

DRUGS (3)
  1. DOXEPIN HCL [Suspect]
  2. MOCLOBEMIDE [Suspect]
     Indication: DEPRESSION
     Dosage: 300 MG, DAILY
  3. WICK MEDINAIT [Concomitant]

REACTIONS (4)
  - COMA [None]
  - HYPOTHERMIA [None]
  - RHABDOMYOLYSIS [None]
  - SUICIDE ATTEMPT [None]
